FAERS Safety Report 13492453 (Version 2)
Quarter: 2017Q2

REPORT INFORMATION
  Report Type: Spontaneous
  Country: US (occurrence: US)
  Receive Date: 20170427
  Receipt Date: 20170511
  Transmission Date: 20170830
  Serious: No
  Sender: FDA-Public Use
  Company Number: US-PFIZER INC-2017181880

PATIENT
  Age: 54 Year
  Sex: Female

DRUGS (1)
  1. IBRANCE [Suspect]
     Active Substance: PALBOCICLIB
     Dosage: 100 MG, CYCLIC (1 CAPSULE BY MOUTH DAILY 3WEEKS ON + 1 WEEK OFF)
     Route: 048
     Dates: start: 201703

REACTIONS (6)
  - Fatigue [Not Recovered/Not Resolved]
  - Pain in jaw [Recovered/Resolved]
  - Diarrhoea [Recovered/Resolved]
  - Hallucination [Recovered/Resolved]
  - Dizziness [Recovered/Resolved]
  - Confusional state [Recovered/Resolved]
